FAERS Safety Report 7473417-9 (Version None)
Quarter: 2011Q2

REPORT INFORMATION
  Report Type: 
  Country: None (occurrence: None)
  Receive Date: 20110503
  Receipt Date: 20110421
  Transmission Date: 20111010
  Serious: Yes (Death, Hospitalization)
  Sender: FDA-Public Use
  Company Number: UTC-006547

PATIENT
  Age: 59 Year
  Sex: Female

DRUGS (4)
  1. TYVASO [Suspect]
     Indication: PULMONARY ARTERIAL HYPERTENSION
     Dosage: INHALATION
     Route: 055
     Dates: start: 20100901, end: 20110401
  2. DIURETICS [Concomitant]
  3. REMODULIN [Suspect]
     Indication: PULMONARY ARTERIAL HYPERTENSION
     Dosage: INTRAVENOUS
     Route: 042
     Dates: start: 20110418
  4. REVATIO [Concomitant]

REACTIONS (2)
  - MULTI-ORGAN FAILURE [None]
  - DIALYSIS [None]
